FAERS Safety Report 25473242 (Version 1)
Quarter: 2025Q2

REPORT INFORMATION
  Report Type: Spontaneous
  Country: PT (occurrence: PT)
  Receive Date: 20250624
  Receipt Date: 20250624
  Transmission Date: 20250716
  Serious: Yes (Death, Life-Threatening, Hospitalization, Other)
  Sender: Haleon PLC
  Company Number: PT-LABALTER-202203636

PATIENT
  Age: 86 Year
  Sex: Male

DRUGS (4)
  1. DICLOFENAC [Suspect]
     Active Substance: DICLOFENAC
     Indication: Lumbar vertebral fracture
  2. DICLOFENAC [Suspect]
     Active Substance: DICLOFENAC
     Indication: Spinal fracture
  3. DICLOFENAC [Suspect]
     Active Substance: DICLOFENAC
     Indication: Analgesic therapy
  4. DICLOFENAC [Suspect]
     Active Substance: DICLOFENAC
     Indication: Fall

REACTIONS (5)
  - Drug-induced liver injury [Fatal]
  - Drug-induced liver injury [Fatal]
  - Hepatic failure [Fatal]
  - Acute hepatic failure [Fatal]
  - Acute hepatic failure [Fatal]
